FAERS Safety Report 11747569 (Version 1)
Quarter: 2015Q4

REPORT INFORMATION
  Report Type: Spontaneous
  Country: US (occurrence: US)
  Receive Date: 20151117
  Receipt Date: 20151117
  Transmission Date: 20160304
  Serious: Yes (Other)
  Sender: FDA-Public Use
  Company Number: US-SHIRE-US201513713

PATIENT
  Sex: Female
  Weight: 101.59 kg

DRUGS (36)
  1. PENTASA [Suspect]
     Active Substance: MESALAMINE
     Indication: COLITIS ULCERATIVE
     Dosage: 750 MG (THREE 250 MG PILLS), 1X/DAY:QD
     Route: 048
     Dates: end: 2014
  2. PENTASA [Suspect]
     Active Substance: MESALAMINE
     Dosage: 500 MG (TWO 250 MG PILLS), 1X/DAY:QD
     Route: 048
     Dates: start: 2015, end: 2015
  3. PENTASA [Suspect]
     Active Substance: MESALAMINE
     Dosage: 250 MG, 1X/DAY:QD
     Route: 048
     Dates: start: 2015
  4. ESTROPIPATE. [Concomitant]
     Active Substance: ESTROPIPATE
     Indication: MENOPAUSE
     Dosage: 0.312 MG (1/2 OF A 0.625 MG), 1X/DAY:QD
     Route: 048
     Dates: end: 2014
  5. KLONOPIN [Concomitant]
     Active Substance: CLONAZEPAM
     Indication: SLEEP DISORDER
     Dosage: 2 MG, 1X/DAY:QD
     Route: 048
  6. FLEXERIL [Concomitant]
     Active Substance: CYCLOBENZAPRINE HYDROCHLORIDE
     Indication: MUSCLE RELAXANT THERAPY
     Dosage: UNK (1/4 OF A PILL), 1X/DAY:QD
     Route: 048
  7. OMEPRAZOLE. [Concomitant]
     Active Substance: OMEPRAZOLE
     Indication: GASTRITIS PROPHYLAXIS
     Dosage: 20 MG, 1X/DAY:QD
     Route: 048
  8. PENTASA [Suspect]
     Active Substance: MESALAMINE
     Dosage: 750 MG (THREE 250 MG PILLS), 1X/DAY:QD
     Route: 048
     Dates: start: 201501, end: 2015
  9. LORAZEPAM. [Concomitant]
     Active Substance: LORAZEPAM
     Indication: SLEEP DISORDER
     Dosage: 1 MG, 1X/DAY:QD
     Route: 048
  10. BABY ASPIRIN [Concomitant]
     Active Substance: ASPIRIN
     Indication: PROPHYLAXIS
     Dosage: 81 MG, 1X/DAY:QD
     Route: 048
  11. VITAMIN C [Concomitant]
     Active Substance: ASCORBIC ACID
     Indication: SUPPLEMENTATION THERAPY
     Dosage: 500 MG, 1X/DAY:QD
     Route: 048
  12. COENZYME Q10 [Concomitant]
     Active Substance: UBIDECARENONE
     Indication: SUPPLEMENTATION THERAPY
     Dosage: 50 MG, 1X/DAY:QD
     Route: 065
  13. FLAXSEED [Concomitant]
     Active Substance: FLAX SEED
     Indication: SUPPLEMENTATION THERAPY
     Dosage: 1200 MG, 1X/DAY:QD
     Route: 065
  14. COD LIVER OIL [Concomitant]
     Active Substance: COD LIVER OIL
     Indication: SUPPLEMENTATION THERAPY
     Dosage: UNK, 1X/DAY:QD
     Route: 065
  15. VITAMIN B12 [Concomitant]
     Active Substance: CYANOCOBALAMIN
     Indication: SUPPLEMENTATION THERAPY
     Dosage: 500 MG, 1X/DAY:QD
     Route: 065
  16. NADH [Concomitant]
     Active Substance: NADH
     Indication: SUPPLEMENTATION THERAPY
     Dosage: UNK, UNKNOWN
     Route: 048
  17. PENTASA [Suspect]
     Active Substance: MESALAMINE
     Dosage: 2250 MG (NINE 250 MG PILLS), OTHER (A DAY)
     Route: 048
  18. GABAPENTIN. [Concomitant]
     Active Substance: GABAPENTIN
     Indication: NEUROPATHY PERIPHERAL
     Dosage: 300 MG, 1X/DAY:QD
     Route: 048
  19. BETACAROTIN [Concomitant]
     Indication: SUPPLEMENTATION THERAPY
     Dosage: 10000 IU, 1X/DAY:QD
     Route: 048
  20. MULTIVITAMIN                       /07504101/ [Concomitant]
     Active Substance: VITAMINS
     Indication: SUPPLEMENTATION THERAPY
     Dosage: UNK (HALF A PILL), 1X/DAY:QD
     Route: 048
  21. GARLIC                             /01570501/ [Concomitant]
     Indication: SUPPLEMENTATION THERAPY
     Dosage: UNK (10000), 1X/DAY:QD
     Route: 065
  22. PROBIOTIC                          /06395501/ [Concomitant]
     Active Substance: BIFIDOBACTERIUM ANIMALIS SUBSP. LACTIS
     Indication: PRODUCT USED FOR UNKNOWN INDICATION
     Dosage: UNK, 1X/DAY:QD
     Route: 065
     Dates: start: 2015
  23. ESTROGEN [Concomitant]
     Active Substance: ESTRONE\SUS SCROFA OVARY
     Indication: MENOPAUSE
     Dosage: 1 PATCH, UNKNOWN
     Route: 062
     Dates: end: 2014
  24. VITAMIN D                          /00107901/ [Concomitant]
     Active Substance: ERGOCALCIFEROL
     Indication: SUPPLEMENTATION THERAPY
     Dosage: 1000 IU, 3X/DAY:TID
     Route: 065
  25. SYNTHROID [Concomitant]
     Active Substance: LEVOTHYROXINE SODIUM
     Indication: RADIOTHERAPY TO THYROID
     Dosage: 62.5 MG (HALF OF A 125 MG TABLET), 1X/DAY:QD
     Route: 065
  26. FOLIC ACID. [Concomitant]
     Active Substance: FOLIC ACID
     Indication: SUPPLEMENTATION THERAPY
     Dosage: 800 ?G, 1X/DAY:QD
     Route: 048
  27. BIOTIN [Concomitant]
     Active Substance: BIOTIN
     Indication: SUPPLEMENTATION THERAPY
     Dosage: 250 ?G, 1X/DAY:QD
     Route: 048
  28. DHEA [Concomitant]
     Active Substance: PRASTERONE
     Indication: SUPPLEMENTATION THERAPY
     Dosage: 5 MG, 1X/DAY:QD
     Route: 065
  29. FISH OIL [Concomitant]
     Active Substance: FISH OIL
     Indication: SUPPLEMENTATION THERAPY
     Dosage: UNK, OTHER (TWICE A WEEK)
     Route: 065
  30. ZINC [Concomitant]
     Active Substance: ZINC\ZINC CHLORIDE
     Indication: SUPPLEMENTATION THERAPY
     Dosage: 25 MG, 1X/DAY:QD
     Route: 048
  31. VITAMIN E [Concomitant]
     Active Substance: .ALPHA.-TOCOPHEROL
     Indication: SUPPLEMENTATION THERAPY
     Dosage: 200 IU, 1X/DAY:QD
     Route: 048
  32. CRANBERRY                          /01512301/ [Concomitant]
     Active Substance: CRANBERRY
     Indication: CYSTITIS
     Dosage: 300 MG, 1X/DAY:QD
     Route: 048
  33. VITAMIN B6 [Concomitant]
     Active Substance: PYRIDOXINE HYDROCHLORIDE
     Indication: SUPPLEMENTATION THERAPY
     Dosage: 50 MG, 1X/DAY:QD
     Route: 065
  34. CALCIUM [Concomitant]
     Active Substance: CALCIUM
     Indication: SUPPLEMENTATION THERAPY
     Dosage: UNK, UNKNOWN
     Route: 048
  35. MAGNESIUM [Concomitant]
     Active Substance: MAGNESIUM
     Indication: SUPPLEMENTATION THERAPY
     Dosage: 250 MG, 1X/DAY:QD
     Route: 048
  36. CHROMIUM PICOLINATE [Concomitant]
     Active Substance: CHROMIUM PICOLINATE
     Indication: SUPPLEMENTATION THERAPY
     Dosage: UNK, UNKNOWN
     Route: 048

REACTIONS (18)
  - Drug ineffective [Recovered/Resolved]
  - Homicidal ideation [Not Recovered/Not Resolved]
  - Herpes zoster [Recovered/Resolved]
  - Heart rate irregular [Not Recovered/Not Resolved]
  - Muscle spasms [Not Recovered/Not Resolved]
  - Haemorrhage [Recovered/Resolved]
  - Abnormal loss of weight [Unknown]
  - Body height decreased [Not Recovered/Not Resolved]
  - Stress [Not Recovered/Not Resolved]
  - Asthenia [Unknown]
  - Incorrect dose administered [Recovered/Resolved]
  - Lyme disease [Not Recovered/Not Resolved]
  - Disturbance in social behaviour [Recovered/Resolved]
  - Libido disorder [Recovered/Resolved]
  - Liver disorder [Recovering/Resolving]
  - Diarrhoea [Recovered/Resolved]
  - Urticaria [Not Recovered/Not Resolved]
  - Malaise [Recovered/Resolved]

NARRATIVE: CASE EVENT DATE: 2005
